FAERS Safety Report 12637355 (Version 1)
Quarter: 2016Q3

REPORT INFORMATION
  Report Type: Spontaneous
  Country: US (occurrence: US)
  Receive Date: 20160809
  Receipt Date: 20160809
  Transmission Date: 20161109
  Serious: No
  Sender: FDA-Public Use
  Company Number: US-BEH-2015057489

PATIENT
  Sex: Female
  Weight: 60 kg

DRUGS (23)
  1. VITAMIN D3 [Concomitant]
     Active Substance: CHOLECALCIFEROL
  2. SODIUM CHLORIDE. [Concomitant]
     Active Substance: SODIUM CHLORIDE
  3. OMNITROPE [Concomitant]
     Active Substance: SOMATROPIN
  4. GLUTATHIONE-L [Concomitant]
  5. TRI-EST/TESTOSTERONE COMPOUND [Concomitant]
  6. EPIPEN [Concomitant]
     Active Substance: EPINEPHRINE
  7. PRIVIGEN [Suspect]
     Active Substance: HUMAN IMMUNOGLOBULIN G
     Indication: IMMUNODEFICIENCY COMMON VARIABLE
     Route: 042
  8. PRIVIGEN [Suspect]
     Active Substance: HUMAN IMMUNOGLOBULIN G
     Route: 042
     Dates: start: 20151027
  9. ACETAMINOPHEN. [Concomitant]
     Active Substance: ACETAMINOPHEN
  10. VITAMIN B COMPLEX [Concomitant]
     Active Substance: CYANOCOBALAMIN\DEXPANTHENOL\NIACINAMIDE\PYRIDOXINE HYDROCHLORIDE\RIBOFLAVIN 5^-PHOSPHATE SODIUM\THIAMINE HYDROCHLORIDE\VITAMIN B COMPLEX
  11. COQ10 [Concomitant]
     Active Substance: UBIDECARENONE
  12. SUMATRIPTAN SUCCINATE. [Concomitant]
     Active Substance: SUMATRIPTAN SUCCINATE
  13. ARMOUR THYROID COMPOUND [Concomitant]
  14. DIPHENHYDRAMINE. [Concomitant]
     Active Substance: DIPHENHYDRAMINE
  15. PROGESTERONE/DHEA COUMPOUND [Concomitant]
  16. LIDOCAINE. [Concomitant]
     Active Substance: LIDOCAINE
  17. MAGNESIUM [Concomitant]
     Active Substance: MAGNESIUM
  18. MULTIVITAMINS [Concomitant]
     Active Substance: VITAMINS
  19. VITAMIN C [Concomitant]
     Active Substance: ASCORBIC ACID
  20. GABAPENTIN. [Concomitant]
     Active Substance: GABAPENTIN
  21. LYSINE [Concomitant]
     Active Substance: LYSINE
  22. PRIVIGEN [Suspect]
     Active Substance: HUMAN IMMUNOGLOBULIN G
     Indication: HYPOTHALAMO-PITUITARY DISORDER
     Route: 042
  23. IRON 325 [Concomitant]

REACTIONS (4)
  - Rash [Unknown]
  - Influenza like illness [Unknown]
  - Headache [Unknown]
  - Chills [Unknown]
